FAERS Safety Report 15404070 (Version 1)
Quarter: 2018Q3

REPORT INFORMATION
  Report Type: Spontaneous
  Country: US (occurrence: US)
  Receive Date: 20180919
  Receipt Date: 20180919
  Transmission Date: 20181010
  Serious: No
  Sender: FDA-Public Use
  Company Number: US-AVADEL SPECIALTY PHARMACEUTICALS, LLC-2018AVA00209

PATIENT
  Age: 82 Year
  Sex: Female

DRUGS (1)
  1. NOCTIVA [Suspect]
     Active Substance: DESMOPRESSIN ACETATE
     Dosage: UNK
     Dates: start: 20180720

REACTIONS (7)
  - Nasal discomfort [Unknown]
  - Sneezing [Unknown]
  - Blood sodium decreased [Unknown]
  - Drug effect incomplete [Unknown]
  - Urinary tract infection [Recovered/Resolved]
  - Blood potassium increased [Unknown]
  - Rhinorrhoea [Unknown]

NARRATIVE: CASE EVENT DATE: 201807
